FAERS Safety Report 14951255 (Version 1)
Quarter: 2018Q2

REPORT INFORMATION
  Report Type: Spontaneous
  Country: US (occurrence: US)
  Receive Date: 20180509
  Receipt Date: 20180509
  Transmission Date: 20180711
  Serious: Yes (Other)
  Sender: FDA-Public Use
  Company Number: None

PATIENT
  Age: 28 Year
  Sex: Female
  Weight: 68.04 kg

DRUGS (1)
  1. PARAGARD T 380A [Suspect]
     Active Substance: COPPER

REACTIONS (5)
  - Dyspareunia [None]
  - Haemorrhage [None]
  - Pain [None]
  - Device dislocation [None]
  - Complication of device insertion [None]

NARRATIVE: CASE EVENT DATE: 20170815
